FAERS Safety Report 11797957 (Version 4)
Quarter: 2016Q2

REPORT INFORMATION
  Report Type: Spontaneous
  Country: US (occurrence: US)
  Receive Date: 20151203
  Receipt Date: 20160401
  Transmission Date: 20160815
  Serious: Yes (Hospitalization, Other)
  Sender: FDA-Public Use
  Company Number: US-UCBSA-2015038789

PATIENT
  Age: 62 Year
  Sex: Male
  Weight: 200 kg

DRUGS (20)
  1. KEPPRA XR [Suspect]
     Active Substance: LEVETIRACETAM
     Indication: SEIZURE
     Dosage: 2000 MG, 2X/DAY (BID)
     Route: 048
     Dates: start: 201206
  2. LYRICA [Concomitant]
     Active Substance: PREGABALIN
     Indication: PRODUCT USED FOR UNKNOWN INDICATION
     Dosage: UNK
  3. COUMADIN [Concomitant]
     Active Substance: WARFARIN SODIUM
     Indication: ANTICOAGULANT THERAPY
     Dosage: PRESCRIBED AMOUNT (CURRENTLY 7.0), ONCE DAILY (5.00 PM)
     Dates: start: 200903
  4. FUROSEMIDE. [Concomitant]
     Active Substance: FUROSEMIDE
     Indication: PRODUCT USED FOR UNKNOWN INDICATION
     Dosage: 20 MG, 3X/WEEK (MON, WEN, FRI)
     Dates: start: 201507
  5. LOSARTAN. [Concomitant]
     Active Substance: LOSARTAN
     Indication: BLOOD PRESSURE MEASUREMENT
     Dosage: 50 MG, ONCE DAILY (QD)
     Route: 048
     Dates: start: 200903
  6. PROTONIX [Concomitant]
     Active Substance: PANTOPRAZOLE SODIUM
     Indication: PROPHYLAXIS
     Dosage: 40 MG, ONCE DAILY (QD)
     Route: 048
     Dates: start: 201307
  7. VITAMIN D [Concomitant]
     Active Substance: CHOLECALCIFEROL
     Indication: PRODUCT USED FOR UNKNOWN INDICATION
     Dosage: 5000 UNITS 1 DF, ONCE DAILY (QD)
     Route: 048
     Dates: start: 2013
  8. VIMPAT [Suspect]
     Active Substance: LACOSAMIDE
     Indication: SEIZURE
     Dosage: 200 MG IN AM AND 250 MG IN PM
     Route: 048
     Dates: start: 20120815
  9. REVATIO [Concomitant]
     Active Substance: SILDENAFIL CITRATE
     Indication: PULMONARY HYPERTENSION
     Dosage: 20 MG, 3X/DAY (TID)
     Route: 048
     Dates: start: 201307
  10. LEVOXYL [Concomitant]
     Active Substance: LEVOTHYROXINE SODIUM
     Indication: THYROID DISORDER
     Dosage: 200 ?G, ONCE DAILY (1 TAB DAILY)
     Route: 048
     Dates: start: 201412
  11. VIMPAT [Suspect]
     Active Substance: LACOSAMIDE
     Dosage: 250 MG, 2X/DAY (BID)
     Route: 048
     Dates: start: 20151229
  12. ASPIRIN. [Concomitant]
     Active Substance: ASPIRIN
     Indication: ANTICOAGULANT THERAPY
     Dosage: 81 MG, UNK
     Route: 048
  13. SPIRONOLACTONE. [Concomitant]
     Active Substance: SPIRONOLACTONE
     Indication: DIURETIC THERAPY
     Dosage: 25 MG ONE HALF TAB 3X/WEEK
     Route: 048
     Dates: start: 201507
  14. FOLIC ACID. [Concomitant]
     Active Substance: FOLIC ACID
     Indication: ANAEMIA
     Dosage: 1 MG, ONCE DAILY (QD)
     Route: 048
     Dates: start: 201510
  15. METFORMIN [Concomitant]
     Active Substance: METFORMIN HYDROCHLORIDE
     Indication: DIABETES MELLITUS
     Dosage: 1000 MG, ONCE DAILY (QD)
     Route: 048
     Dates: start: 2009
  16. METFORMIN [Concomitant]
     Active Substance: METFORMIN HYDROCHLORIDE
     Dosage: 500 MG, ONCE DAILY (QD)
     Route: 048
     Dates: start: 201307
  17. ASPIRIN. [Concomitant]
     Active Substance: ASPIRIN
     Dosage: 325 MG, ONCE DAILY (QD)
     Route: 048
  18. COREG [Concomitant]
     Active Substance: CARVEDILOL
     Indication: BLOOD PRESSURE ABNORMAL
     Dosage: 12.5 MG, 2X/DAY (BID)
     Route: 048
     Dates: start: 200903
  19. MULTIVITAMIN [Concomitant]
     Active Substance: VITAMINS
     Indication: SUPPLEMENTATION THERAPY
     Dosage: 1 DF, ONCE DAILY (QD)
     Route: 048
     Dates: start: 201307
  20. SULFAMETHOXAZOLE-TRIMETHOPRIM (SMZ) [Concomitant]
     Active Substance: SULFAMETHOXAZOLE\TRIMETHOPRIM
     Indication: BACTERIAL INFECTION
     Dosage: 800MG-160 MG 1 DF, 2X/DAY (BID)
     Route: 048
     Dates: start: 201510

REACTIONS (12)
  - Thyroid cancer [Unknown]
  - Fall [Unknown]
  - Off label use [Unknown]
  - Post procedural infection [Unknown]
  - Arrhythmia [Unknown]
  - Overdose [Unknown]
  - Inappropriate schedule of drug administration [Unknown]
  - Infection [Unknown]
  - Malignant melanoma [Unknown]
  - Generalised tonic-clonic seizure [Unknown]
  - Head injury [Unknown]
  - Seizure [Recovered/Resolved]

NARRATIVE: CASE EVENT DATE: 20120812
